FAERS Safety Report 15936638 (Version 1)
Quarter: 2019Q1

REPORT INFORMATION
  Report Type: Spontaneous
  Country: GB (occurrence: GB)
  Receive Date: 20190208
  Receipt Date: 20190208
  Transmission Date: 20190417
  Serious: Yes (Hospitalization, Other)
  Sender: FDA-Public Use
  Company Number: GB-PRINSTON PHARMACEUTICAL INC.-2019PRN00128

PATIENT
  Age: 83 Year
  Sex: Female

DRUGS (3)
  1. DONEPEZIL. [Suspect]
     Active Substance: DONEPEZIL
     Dosage: 10 MG
     Route: 065
  2. SIMVASTATIN. [Concomitant]
     Active Substance: SIMVASTATIN
     Dosage: 20 MG
     Route: 065
  3. BENDOFLUMETHIAZIDE [Concomitant]
     Dosage: 2.5 MG
     Route: 065

REACTIONS (3)
  - Syncope [Recovered/Resolved]
  - Femur fracture [Unknown]
  - Electrocardiogram QT prolonged [Recovered/Resolved]
